FAERS Safety Report 5726389-9 (Version None)
Quarter: 2008Q2

REPORT INFORMATION
  Report Type: 
  Country: None (occurrence: None)
  Receive Date: 20080502
  Receipt Date: 20080424
  Transmission Date: 20081010
  Serious: Yes (Hospitalization)
  Sender: FDA-Public Use
  Company Number: FR-AVENTIS-200811605FR

PATIENT
  Age: 75 Year
  Sex: Male

DRUGS (3)
  1. BIPROFENID [Suspect]
     Route: 048
     Dates: start: 20071201, end: 20080301
  2. LASILIX                            /00032601/ [Suspect]
     Route: 048
     Dates: start: 20071101, end: 20080301
  3. ALDACTONE [Suspect]
     Indication: DRUG USE FOR UNKNOWN INDICATION
     Route: 048
     Dates: start: 20071205, end: 20080311

REACTIONS (2)
  - DRUG INTERACTION [None]
  - RENAL FAILURE ACUTE [None]
